FAERS Safety Report 17466517 (Version 1)
Quarter: 2020Q1

REPORT INFORMATION
  Report Type: Spontaneous
  Country: FR (occurrence: FR)
  Receive Date: 20200227
  Receipt Date: 20200227
  Transmission Date: 20200409
  Serious: Yes (Other)
  Sender: FDA-Public Use
  Company Number: FR-ROCHE-2558759

PATIENT
  Age: 38 Year
  Sex: Male

DRUGS (3)
  1. VALIUM [Suspect]
     Active Substance: DIAZEPAM
     Indication: PRODUCT ADMINISTRATION ERROR
     Route: 048
     Dates: start: 20200205
  2. LIORESAL [Suspect]
     Active Substance: BACLOFEN
     Indication: PRODUCT ADMINISTRATION ERROR
     Route: 048
     Dates: start: 20200205
  3. GARDENAL [PHENOBARBITAL] [Suspect]
     Active Substance: PHENOBARBITAL
     Indication: PRODUCT ADMINISTRATION ERROR
     Route: 048
     Dates: start: 20200205

REACTIONS (2)
  - Product administration error [Unknown]
  - Somnolence [Recovered/Resolved]

NARRATIVE: CASE EVENT DATE: 20200205
